FAERS Safety Report 4844819-1 (Version None)
Quarter: 2005Q4

REPORT INFORMATION
  Report Type: 
  Country: None (occurrence: None)
  Receive Date: 20051205
  Receipt Date: 20051123
  Transmission Date: 20060501
  Serious: Yes (Other)
  Sender: FDA-Public Use
  Company Number: US-AVENTIS-200519865US

PATIENT
  Sex: Female

DRUGS (2)
  1. PENLAC NAIL LACQUER [Suspect]
     Indication: INFLAMMATION
     Dosage: DOSE: UNK
     Route: 061
     Dates: start: 20051101, end: 20051109
  2. VALIUM [Concomitant]
     Indication: ANXIETY
     Dosage: DOSE: UNK

REACTIONS (3)
  - BLOOD PRESSURE INCREASED [None]
  - DIZZINESS [None]
  - PALPITATIONS [None]
